FAERS Safety Report 9336935 (Version 1)
Quarter: 2013Q2

REPORT INFORMATION
  Report Type: Spontaneous
  Country: GB (occurrence: GB)
  Receive Date: 20130607
  Receipt Date: 20130607
  Transmission Date: 20140414
  Serious: Yes (Death, Other)
  Sender: FDA-Public Use
  Company Number: GB-PFIZER INC-2013172134

PATIENT
  Age: 27 Year
  Sex: Male

DRUGS (2)
  1. SILDENAFIL CITRATE [Suspect]
     Dosage: UNK
  2. AMBRISENTAN [Suspect]
     Dosage: UNK
     Route: 065

REACTIONS (1)
  - Death [Fatal]
